FAERS Safety Report 18641575 (Version 4)
Quarter: 2021Q1

REPORT INFORMATION
  Report Type: Report from Study
  Country: FR (occurrence: FR)
  Receive Date: 20201221
  Receipt Date: 20210216
  Transmission Date: 20210419
  Serious: Yes (Hospitalization)
  Sender: FDA-Public Use
  Company Number: FR-ROCHE-2730286

PATIENT
  Age: 76 Year
  Sex: Female

DRUGS (4)
  1. TOCILIZUMAB. [Suspect]
     Active Substance: TOCILIZUMAB
     Indication: COVID-19
     Dosage: STRENGTH: 20 MG/ML
     Route: 042
     Dates: start: 20201117, end: 20201117
  2. LETROZOLE. [Suspect]
     Active Substance: LETROZOLE
     Indication: COVID-19
     Route: 065
  3. DEXAMETHASONE. [Suspect]
     Active Substance: DEXAMETHASONE
     Indication: COVID-19
     Dosage: STRENGTH: 4 MG/ML
     Route: 042
  4. OXYGEN. [Concomitant]
     Active Substance: OXYGEN
     Dosage: 03 L/MIN
     Dates: start: 20201106, end: 20201119

REACTIONS (1)
  - Arthritis bacterial [Recovered/Resolved with Sequelae]

NARRATIVE: CASE EVENT DATE: 20201126
